FAERS Safety Report 5196307-3 (Version None)
Quarter: 2006Q4

REPORT INFORMATION
  Report Type: 
  Country: None (occurrence: None)
  Receive Date: 20061222
  Receipt Date: 20061211
  Transmission Date: 20070319
  Serious: Yes (Other)
  Sender: FDA-Public Use
  Company Number: 2006150860

PATIENT
  Age: 56 Year
  Sex: Female

DRUGS (4)
  1. CARDENALIN (DOXAZOSIN) [Suspect]
     Dosage: 1 MG, ORAL
     Route: 048
     Dates: start: 20060510, end: 20061121
  2. BLOPRESS (CANDESARTAN CILEXETIL) [Suspect]
     Dosage: 4 MG, ORAL
     Route: 048
     Dates: start: 20060201
  3. HERBAL PREPARATION (HERBAL PREPARATION) [Concomitant]
  4. LIVALO (ITAVASTATIN) [Concomitant]

REACTIONS (1)
  - VENTRICULAR EXTRASYSTOLES [None]
